FAERS Safety Report 12239395 (Version 1)
Quarter: 2016Q2

REPORT INFORMATION
  Report Type: Spontaneous
  Country: US (occurrence: US)
  Receive Date: 20160405
  Receipt Date: 20160405
  Transmission Date: 20160815
  Serious: Yes (Death)
  Sender: FDA-Public Use
  Company Number: US-PFIZER INC-2016185526

PATIENT
  Age: 23 Year
  Sex: Female

DRUGS (10)
  1. SULFAMETHOXAZOLE/TRIMETHOPRIM [Suspect]
     Active Substance: SULFAMETHOXAZOLE\TRIMETHOPRIM
     Indication: ORGANISING PNEUMONIA
     Dosage: UNK
  2. ERYTHROMYCIN. [Suspect]
     Active Substance: ERYTHROMYCIN
     Indication: ORGANISING PNEUMONIA
     Dosage: UNK
  3. METHYLPREDNISOLONE ACETATE. [Suspect]
     Active Substance: METHYLPREDNISOLONE ACETATE
     Indication: ORGANISING PNEUMONIA
     Dosage: UNK
  4. ISONIAZID. [Suspect]
     Active Substance: ISONIAZID
     Indication: ORGANISING PNEUMONIA
     Dosage: UNK
  5. DOXYCYCLINE HYCLATE. [Suspect]
     Active Substance: DOXYCYCLINE HYCLATE
     Indication: ORGANISING PNEUMONIA
     Dosage: UNK
  6. VANCOMYCIN HCL [Suspect]
     Active Substance: VANCOMYCIN HYDROCHLORIDE
     Indication: ORGANISING PNEUMONIA
     Dosage: UNK
  7. AZTREONAM. [Suspect]
     Active Substance: AZTREONAM
     Indication: ORGANISING PNEUMONIA
     Dosage: UNK
  8. AMPHOTERICIN [Suspect]
     Active Substance: AMPHOTERICIN B
     Indication: ORGANISING PNEUMONIA
     Dosage: UNK
  9. GANCICLOVIR. [Suspect]
     Active Substance: GANCICLOVIR
     Indication: ORGANISING PNEUMONIA
     Dosage: UNK
  10. RIFAMPICIN [Suspect]
     Active Substance: RIFAMPIN
     Indication: ORGANISING PNEUMONIA
     Dosage: UNK

REACTIONS (2)
  - Drug ineffective [Fatal]
  - Respiratory failure [None]
